FAERS Safety Report 6780010-X (Version None)
Quarter: 2010Q2

REPORT INFORMATION
  Report Type: 
  Country: None (occurrence: None)
  Receive Date: 20100618
  Receipt Date: 20100611
  Transmission Date: 20101027
  Serious: Yes (Other)
  Sender: FDA-Public Use
  Company Number: US-JNJFOC-20100503501

PATIENT
  Age: 14 Month
  Sex: Male
  Weight: 13.15 kg

DRUGS (7)
  1. CONCENTRATED TYLENOL INFANT DROPS [Suspect]
     Route: 048
  2. CONCENTRATED TYLENOL INFANT DROPS [Suspect]
     Indication: TEETHING
     Dosage: 1.6ML EVERY 5-6 HOURS
     Route: 048
  3. CONCENTRATED TYLENOL INFANT DROPS [Suspect]
     Route: 048
  4. CONCENTRATED TYLENOL INFANT DROPS [Suspect]
     Indication: TEETHING
     Dosage: 1.6ML EVERY 5 TO  6 HOURS
     Route: 048
  5. CHILDREN'S MOTRIN [Suspect]
     Route: 048
  6. CHILDREN'S MOTRIN [Suspect]
     Indication: TEETHING
     Dosage: 1.6ML EVERY 5-6 HOURS
     Route: 048
  7. ANTIBIOTICS [Concomitant]
     Indication: DRUG USE FOR UNKNOWN INDICATION

REACTIONS (2)
  - PRODUCT QUALITY ISSUE [None]
  - STAPHYLOCOCCAL INFECTION [None]
